FAERS Safety Report 6959171-5 (Version None)
Quarter: 2010Q3

REPORT INFORMATION
  Report Type: 
  Country: None (occurrence: None)
  Receive Date: 20100831
  Receipt Date: 20100823
  Transmission Date: 20110219
  Serious: Yes (Other)
  Sender: FDA-Public Use
  Company Number: PHHY2010US55807

PATIENT
  Sex: Female

DRUGS (8)
  1. CLOZARIL [Suspect]
  2. WATER PILLS [Concomitant]
  3. ZOCOR [Concomitant]
  4. GLIMEPIRIDE [Concomitant]
  5. METFORMIN HCL [Concomitant]
  6. NOVOLIN 70/30 [Concomitant]
     Dosage: 20 UNITS
  7. LENTE [Concomitant]
     Dosage: 10 UNITS
  8. HUMULIN R [Concomitant]
     Dosage: 70 UNITS TWO TIMES A DAY

REACTIONS (5)
  - ABNORMAL BEHAVIOUR [None]
  - DIARRHOEA [None]
  - GLUCOSE TOLERANCE IMPAIRED [None]
  - PULSE ABNORMAL [None]
  - SCHIZOAFFECTIVE DISORDER [None]
